FAERS Safety Report 5621066-7 (Version None)
Quarter: 2008Q1

REPORT INFORMATION
  Report Type: 
  Country: None (occurrence: None)
  Receive Date: 20080208
  Receipt Date: 20080131
  Transmission Date: 20080703
  Serious: Yes (Hospitalization)
  Sender: FDA-Public Use
  Company Number: FR-PFIZER INC-2008011033

PATIENT
  Age: 64 Year
  Sex: Female

DRUGS (5)
  1. SOLU-MEDROL [Suspect]
     Indication: PREMEDICATION
     Dates: start: 20070327, end: 20070327
  2. ELOXATIN [Suspect]
     Indication: OVARIAN CANCER
     Route: 042
     Dates: start: 20070327, end: 20070327
  3. GEMZAR [Suspect]
     Indication: OVARIAN CANCER
     Route: 042
     Dates: start: 20070327, end: 20070327
  4. PLITICAN [Suspect]
     Indication: PREMEDICATION
     Route: 042
     Dates: start: 20070327, end: 20070327
  5. ZOPHREN [Suspect]
     Indication: PREMEDICATION
     Route: 042
     Dates: start: 20070327, end: 20070327

REACTIONS (5)
  - CHILLS [None]
  - NAUSEA [None]
  - PARAESTHESIA MUCOSAL [None]
  - TREMOR [None]
  - VOMITING [None]
